FAERS Safety Report 7559903-1 (Version None)
Quarter: 2011Q2

REPORT INFORMATION
  Report Type: 
  Country: None (occurrence: None)
  Receive Date: 20110621
  Receipt Date: 20110606
  Transmission Date: 20111010
  Serious: Yes (Hospitalization)
  Sender: FDA-Public Use
  Company Number: PHHY2011JP51359

PATIENT
  Sex: Female
  Weight: 62 kg

DRUGS (4)
  1. DISOPYRAMIDE PHOSPHATE [Concomitant]
     Dosage: 300 MG, UNK
     Route: 048
  2. VERAPAMIL HCL [Concomitant]
     Dosage: 40 MG, UNK
     Route: 048
     Dates: start: 20090525
  3. VALSARTAN [Suspect]
     Dosage: 40 MG, QD
     Route: 048
     Dates: start: 20080512, end: 20091116
  4. DIGOXIN [Concomitant]
     Dosage: 0.125 MG, UNK
     Route: 048
     Dates: end: 20090524

REACTIONS (2)
  - CERVIX CARCINOMA [None]
  - HYPOTENSION [None]
